FAERS Safety Report 9857912 (Version 1)
Quarter: 2014Q1

REPORT INFORMATION
  Report Type: Spontaneous
  Country: US (occurrence: US)
  Receive Date: 20140131
  Receipt Date: 20140131
  Transmission Date: 20141002
  Serious: Yes (Death, Other)
  Sender: FDA-Public Use
  Company Number: US-CELGENEUS-163-50794-14013709

PATIENT
  Sex: 0

DRUGS (5)
  1. VIDAZA [Suspect]
     Indication: ACUTE MYELOID LEUKAEMIA
     Dosage: 75 MILLIGRAM/SQ. METER
     Route: 065
  2. VORINOSTAT [Suspect]
     Indication: ACUTE MYELOID LEUKAEMIA
     Dosage: 200 MILLIGRAM
     Route: 048
  3. VORINOSTAT [Suspect]
     Dosage: 300 MILLIGRAM
     Route: 048
  4. VORINOSTAT [Suspect]
     Dosage: 400 MILLIGRAM
     Route: 048
  5. GEMTUZUMAB OZOGAMICIN [Suspect]
     Indication: ACUTE MYELOID LEUKAEMIA
     Route: 041

REACTIONS (2)
  - Infection [Fatal]
  - Pancytopenia [Unknown]
